FAERS Safety Report 6026298-4 (Version None)
Quarter: 2008Q4

REPORT INFORMATION
  Report Type: 
  Country: None (occurrence: None)
  Receive Date: 20081230
  Receipt Date: 20081219
  Transmission Date: 20090506
  Serious: Yes (Death, Hospitalization, Other)
  Sender: FDA-Public Use
  Company Number: 55465

PATIENT
  Age: 30 Year
  Sex: Male

DRUGS (1)
  1. CIPROFLOXACIN [Suspect]
     Indication: URINARY TRACT INFECTION
     Dosage: 1G/DAY

REACTIONS (7)
  - AUTOIMMUNE THROMBOCYTOPENIA [None]
  - CARDIAC FAILURE ACUTE [None]
  - GENERAL PHYSICAL HEALTH DETERIORATION [None]
  - HAEMOLYTIC ANAEMIA [None]
  - MYOCARDIAL HAEMORRHAGE [None]
  - PULMONARY OEDEMA [None]
  - THROMBOTIC THROMBOCYTOPENIC PURPURA [None]
